FAERS Safety Report 6154342-2 (Version None)
Quarter: 2009Q2

REPORT INFORMATION
  Report Type: 
  Country: None (occurrence: None)
  Receive Date: 20090410
  Receipt Date: 20090327
  Transmission Date: 20091009
  Serious: Yes (Hospitalization, Disabling)
  Sender: FDA-Public Use
  Company Number: 8041415

PATIENT
  Age: 48 Year
  Sex: Male

DRUGS (6)
  1. KEPPRA [Suspect]
     Indication: EPILEPSY
     Dosage: 500 MG 2/D PO
     Route: 048
     Dates: start: 20081115
  2. KEPPRA [Suspect]
     Indication: EPILEPSY
     Dates: end: 20090118
  3. AMBISOME [Concomitant]
  4. WELLVONE [Concomitant]
  5. EPIVIR [Concomitant]
  6. PREZISTA [Concomitant]

REACTIONS (1)
  - THROMBOCYTOPENIA [None]
